FAERS Safety Report 5806723-1 (Version None)
Quarter: 2008Q3

REPORT INFORMATION
  Report Type: 
  Country: None (occurrence: None)
  Receive Date: 20080709
  Receipt Date: 20080709
  Transmission Date: 20090109
  Serious: No
  Sender: FDA-Public Use
  Company Number: None

PATIENT
  Age: 35 Year
  Sex: Female
  Weight: 52.1637 kg

DRUGS (1)
  1. KENALOG [Suspect]
     Indication: SINUSITIS
     Dosage: ONE SHOT ONLY
     Dates: start: 20080621, end: 20080621

REACTIONS (1)
  - SKIN DISORDER [None]
